FAERS Safety Report 6168360-1 (Version None)
Quarter: 2009Q2

REPORT INFORMATION
  Report Type: 
  Country: None (occurrence: None)
  Receive Date: 20090427
  Receipt Date: 20090420
  Transmission Date: 20091009
  Serious: Yes (Hospitalization, Other)
  Sender: FDA-Public Use
  Company Number: US-BAXTER-2009BH006337

PATIENT
  Sex: Female
  Weight: 99 kg

DRUGS (5)
  1. ENDOXAN BAXTER [Suspect]
     Indication: BREAST CANCER
     Route: 065
     Dates: start: 20090303
  2. ENDOXAN BAXTER [Suspect]
     Route: 065
     Dates: start: 20081231
  3. ADRIAMYCIN RDF [Suspect]
     Indication: BREAST CANCER
     Route: 065
     Dates: start: 20090303
  4. ADRIAMYCIN RDF [Suspect]
     Route: 065
     Dates: start: 20081231
  5. IXABEPILONE [Suspect]
     Indication: BREAST CANCER
     Route: 065
     Dates: start: 20090324

REACTIONS (2)
  - DEEP VEIN THROMBOSIS [None]
  - PULMONARY EMBOLISM [None]
